FAERS Safety Report 25566138 (Version 1)
Quarter: 2025Q3

REPORT INFORMATION
  Report Type: Spontaneous
  Country: US (occurrence: None)
  Receive Date: 20250715
  Receipt Date: 20250715
  Transmission Date: 20251020
  Serious: Yes (Life-Threatening)
  Sender: FDA-CTU
  Company Number: None

PATIENT
  Age: 43 Year
  Sex: Male
  Weight: 99 kg

DRUGS (1)
  1. HERBALS\MITRAGYNINE [Suspect]
     Active Substance: HERBALS\MITRAGYNINE
     Dosage: OTHER QUANTITY : 2 OUNCE(S);?FREQUENCY : 4 TIMES A DAY;?
     Route: 048
     Dates: start: 20230701, end: 20250707

REACTIONS (7)
  - Drug dependence [None]
  - Withdrawal syndrome [None]
  - Drug dependence [None]
  - Emotional disorder [None]
  - Ill-defined disorder [None]
  - Product formulation issue [None]
  - Product advertising issue [None]

NARRATIVE: CASE EVENT DATE: 20250708
